FAERS Safety Report 6636768-3 (Version None)
Quarter: 2010Q1

REPORT INFORMATION
  Report Type: 
  Country: None (occurrence: None)
  Receive Date: 20100316
  Receipt Date: 20100308
  Transmission Date: 20100710
  Serious: Yes (Hospitalization)
  Sender: FDA-Public Use
  Company Number: BE-B.I. PHARMACEUTICALS,INC./RIDGEFIELD-2010-BL-00034BL

PATIENT
  Age: 58 Year
  Sex: Female

DRUGS (2)
  1. SIFROL [Suspect]
     Indication: RESTLESS LEGS SYNDROME
     Dates: start: 20091020, end: 20100301
  2. VOLTAREN [Concomitant]
     Dates: start: 20100301, end: 20100301

REACTIONS (1)
  - ANGIOEDEMA [None]
